FAERS Safety Report 4557112-1 (Version None)
Quarter: 2005Q1

REPORT INFORMATION
  Report Type: 
  Country: None (occurrence: None)
  Receive Date: 20050119
  Receipt Date: 20050119
  Transmission Date: 20050727
  Serious: Yes (Other)
  Sender: FDA-Public Use
  Company Number: None

PATIENT
  Age: 58 Year
  Sex: Male
  Weight: 116.5744 kg

DRUGS (2)
  1. SINGULAIR [Suspect]
     Indication: ASBESTOSIS
     Dosage: 10 MG PO DAILY
     Route: 048
  2. SINGULAIR [Suspect]
     Indication: CHRONIC OBSTRUCTIVE PULMONARY DISEASE
     Dosage: 10 MG PO DAILY
     Route: 048

REACTIONS (1)
  - EAR INFECTION [None]
